FAERS Safety Report 9768552 (Version 1)
Quarter: 2013Q4

REPORT INFORMATION
  Report Type: Spontaneous
  Country: AT (occurrence: AT)
  Receive Date: 20131217
  Receipt Date: 20131217
  Transmission Date: 20140711
  Serious: Yes (Death, Other)
  Sender: FDA-Public Use
  Company Number: AT-AMGEN-AUTSP2013088052

PATIENT
  Age: 66 Year
  Sex: Male

DRUGS (2)
  1. CINACALCET HCL [Suspect]
     Indication: PRODUCT USED FOR UNKNOWN INDICATION
     Route: 065
  2. SODIUM THIOSULFATE [Concomitant]
     Indication: CALCIPHYLAXIS
     Dosage: 25 G, Q3WK
     Route: 065

REACTIONS (5)
  - Cardiac failure [Fatal]
  - Metabolic acidosis [Unknown]
  - Colon cancer metastatic [Unknown]
  - Nausea [Unknown]
  - Extensive interdialytic weight gain [Not Recovered/Not Resolved]
